FAERS Safety Report 4996542-0 (Version None)
Quarter: 2006Q2

REPORT INFORMATION
  Report Type: 
  Country: None (occurrence: None)
  Receive Date: 20060505
  Receipt Date: 20060428
  Transmission Date: 20061013
  Serious: Yes (Death, Life-Threatening)
  Sender: FDA-Public Use
  Company Number: 13962

PATIENT
  Age: 30 Year
  Sex: Male
  Weight: 73 kg

DRUGS (12)
  1. ATRACURIUM BESYLATE [Suspect]
     Indication: ANAESTHESIA
     Dosage: 5 MG
  2. ATRACURIUM BESYLATE [Suspect]
     Indication: INTUBATION
     Dosage: 5 MG
  3. ATRACURIUM BESYLATE [Suspect]
     Indication: ANAESTHESIA
     Dosage: 30 MG
  4. ATRACURIUM BESYLATE [Suspect]
     Indication: INTUBATION
     Dosage: 30 MG
  5. FENTANYL [Suspect]
     Indication: ANAESTHESIA
     Dosage: 200 UG
  6. MIDAZOLAM HCL [Suspect]
     Indication: ANAESTHESIA
     Dosage: 2 MG
  7. PROPOFOL [Suspect]
     Indication: CORNEAL REFLEX DECREASED
  8. DEXAMETHASONE [Concomitant]
  9. DIAZEPAM [Concomitant]
  10. DICLOFENAC POTASSIUM [Concomitant]
  11. TRAMADOL HCL [Concomitant]
  12. LIDOCAINE [Concomitant]

REACTIONS (33)
  - ANAPHYLACTIC REACTION [None]
  - BLOOD BICARBONATE DECREASED [None]
  - BLOOD CHLORIDE INCREASED [None]
  - BLOOD PH DECREASED [None]
  - BLOOD PRESSURE INCREASED [None]
  - BRADYCARDIA [None]
  - CIRCULATORY COLLAPSE [None]
  - CORONARY ARTERY STENOSIS [None]
  - COUGH [None]
  - CYANOSIS [None]
  - DEVICE INEFFECTIVE [None]
  - DRUG ABUSER [None]
  - DRUG HYPERSENSITIVITY [None]
  - DYSKINESIA [None]
  - ELECTROCARDIOGRAM QRS COMPLEX PROLONGED [None]
  - ELECTROMECHANICAL DISSOCIATION [None]
  - GASTROINTESTINAL HAEMORRHAGE [None]
  - HAEMOGLOBIN DECREASED [None]
  - HEPATIC CONGESTION [None]
  - MYOCARDIAL INFARCTION [None]
  - OXYGEN SATURATION DECREASED [None]
  - PALLOR [None]
  - PLATELET COUNT DECREASED [None]
  - PNEUMOTHORAX [None]
  - PO2 INCREASED [None]
  - RENAL TUBULAR NECROSIS [None]
  - RESUSCITATION [None]
  - SUPRAVENTRICULAR TACHYCARDIA [None]
  - VENTRICULAR ARRHYTHMIA [None]
  - VENTRICULAR EXTRASYSTOLES [None]
  - VENTRICULAR FIBRILLATION [None]
  - WHEEZING [None]
  - WHITE BLOOD CELL COUNT INCREASED [None]
